FAERS Safety Report 8682993 (Version 2)
Quarter: 2015Q2

REPORT INFORMATION
  Report Type: Report from Study
  Country: US (occurrence: US)
  Receive Date: 20120725
  Receipt Date: 20150408
  Transmission Date: 20150821
  Serious: Yes (Death)
  Sender: FDA-Public Use
  Company Number: US-ROCHE-1086799

PATIENT
  Sex: Male

DRUGS (13)
  1. MAGNESIUM SULFATE. [Concomitant]
     Active Substance: MAGNESIUM SULFATE
     Route: 065
  2. LIDOCAINE. [Concomitant]
     Active Substance: LIDOCAINE
     Route: 065
  3. PHENERGAN [Concomitant]
     Active Substance: PROMETHAZINE HYDROCHLORIDE
     Route: 042
  4. HEPARIN [Concomitant]
     Active Substance: HEPARIN SODIUM
     Route: 042
  5. ACTIVASE [Suspect]
     Active Substance: ALTEPLASE
     Indication: ACUTE MYOCARDIAL INFARCTION
     Route: 042
  6. LASIX [Concomitant]
     Active Substance: FUROSEMIDE
     Route: 042
  7. CARDIZEM [Concomitant]
     Active Substance: DILTIAZEM HYDROCHLORIDE
  8. MORPHINE SULFATE. [Concomitant]
     Active Substance: MORPHINE SULFATE
     Route: 042
  9. ACTIVASE [Suspect]
     Active Substance: ALTEPLASE
     Indication: VENTRICULAR TACHYCARDIA
  10. ACTIVASE [Suspect]
     Active Substance: ALTEPLASE
     Indication: VENTRICULAR FIBRILLATION
  11. LASIX [Concomitant]
     Active Substance: FUROSEMIDE
     Route: 042
  12. XYLOCAINE [Concomitant]
     Active Substance: LIDOCAINE HYDROCHLORIDE
     Route: 065
  13. MORPHINE SULFATE. [Concomitant]
     Active Substance: MORPHINE SULFATE
     Route: 042

REACTIONS (6)
  - Respiratory arrest [Fatal]
  - Hyperhidrosis [Unknown]
  - Genitourinary tract neoplasm [Unknown]
  - Paraesthesia [Unknown]
  - Hypoaesthesia [Unknown]
  - Pain [Unknown]
